FAERS Safety Report 14661319 (Version 1)
Quarter: 2018Q1

REPORT INFORMATION
  Report Type: Report from Study
  Country: US (occurrence: US)
  Receive Date: 20180320
  Receipt Date: 20180320
  Transmission Date: 20180509
  Serious: Yes (Other)
  Sender: FDA-Public Use
  Company Number: US-PFIZER INC-2018115350

PATIENT

DRUGS (9)
  1. OFATUMUMAB [Suspect]
     Active Substance: OFATUMUMAB
     Dosage: 1000 MG, MONTHLY  (ONCE EVERY 4 WEEKS)(SIX CYCLES)
     Route: 042
  2. OFATUMUMAB [Suspect]
     Active Substance: OFATUMUMAB
     Dosage: 1000 MG/M2, EVERY 3 WEEKS (EVERY 21 DAYS)(CYCLES 2-6 ON DAY 1)(SIX CYCLES OF INDUCTION)
     Route: 042
  3. PENTOSTATIN. [Suspect]
     Active Substance: PENTOSTATIN
     Indication: CHRONIC LYMPHOCYTIC LEUKAEMIA
     Dosage: 2 MG/M2, EVERY 3 WEEKS (EVERY 21 DAYS)(ON DAY 1)(SIX CYCLES OF INDUCTION)
     Route: 042
  4. DIPHENHYDRAMINE. [Concomitant]
     Active Substance: DIPHENHYDRAMINE
     Dosage: 50 MG, UNK
     Route: 042
  5. OFATUMUMAB [Suspect]
     Active Substance: OFATUMUMAB
     Dosage: 1000 MG/M2, EVERY 3 WEEKS (EVERY 21 DAYS)(CYCLE 1 ON DAY 2)(SIX CYCLES OF INDUCTION)
     Route: 042
  6. CYCLOPHOSPHAMIDE. [Suspect]
     Active Substance: CYCLOPHOSPHAMIDE
     Indication: CHRONIC LYMPHOCYTIC LEUKAEMIA
     Dosage: 600 MG/M2, EVERY 3 WEEKS (EVERY 21 DAYS)(ON DAY 1)(SIX CYCLES OF INDUCTION)
     Route: 042
  7. ACETAMINOPHEN. [Concomitant]
     Active Substance: ACETAMINOPHEN
     Dosage: 1000 MG, UNK
     Route: 042
  8. METHYLPREDNISOLONE. [Concomitant]
     Active Substance: METHYLPREDNISOLONE
     Dosage: 80 MG, OR EQUIVALENT BEFORE EACH DOSE OF OFATUMUMAB
     Route: 042
  9. OFATUMUMAB [Suspect]
     Active Substance: OFATUMUMAB
     Indication: CHRONIC LYMPHOCYTIC LEUKAEMIA
     Dosage: 300 MG, EVERY 3 WEEKS (EVERY 21 DAY) CYCLE 1: ON DAY 1 (SIX CYCLES OF INDUCTION)
     Route: 042

REACTIONS (1)
  - Rectal ulcer [Unknown]
